FAERS Safety Report 8137477-4 (Version None)
Quarter: 2012Q1

REPORT INFORMATION
  Report Type: 
  Country: None (occurrence: None)
  Receive Date: 20120215
  Receipt Date: 20120204
  Transmission Date: 20120608
  Serious: Yes (Disabling, Other)
  Sender: FDA-Public Use
  Company Number: US-SANOFI-AVENTIS-2012SA007933

PATIENT
  Age: 88 Year
  Sex: Female

DRUGS (3)
  1. HUMALOG [Concomitant]
  2. LANTUS [Suspect]
     Dosage: DOSE:50 UNIT(S)
     Route: 058
  3. SOLOSTAR [Suspect]

REACTIONS (3)
  - SCIATICA [None]
  - ARTHRITIS [None]
  - DISABILITY [None]
